FAERS Safety Report 8336719-X (Version None)
Quarter: 2012Q2

REPORT INFORMATION
  Report Type: 
  Country: None (occurrence: None)
  Receive Date: 20120504
  Receipt Date: 20120423
  Transmission Date: 20120825
  Serious: Yes (Other)
  Sender: FDA-Public Use
  Company Number: BE-JNJFOC-20120207478

PATIENT
  Age: 25 Year
  Sex: Male

DRUGS (3)
  1. BUPRENORPHINE [Concomitant]
     Indication: PAIN
     Route: 065
  2. REMICADE [Suspect]
     Indication: ANKYLOSING SPONDYLITIS
     Route: 042
  3. REMICADE [Suspect]
     Route: 042
     Dates: start: 20100828, end: 20111021

REACTIONS (1)
  - TUBERCULOSIS [None]
